FAERS Safety Report 7506577-1 (Version None)
Quarter: 2011Q2

REPORT INFORMATION
  Report Type: 
  Country: None (occurrence: None)
  Receive Date: 20110526
  Receipt Date: 20110523
  Transmission Date: 20111010
  Serious: Yes (Other)
  Sender: FDA-Public Use
  Company Number: US-PFIZER INC-2011041804

PATIENT
  Sex: Female

DRUGS (5)
  1. NAPROXEN (ALEVE) [Concomitant]
     Indication: PAIN
     Dosage: UNK
  2. MOBIC [Concomitant]
     Indication: PAIN
     Dosage: UNK
     Dates: start: 20040101, end: 20100101
  3. ADVIL LIQUI-GELS [Concomitant]
     Indication: PAIN
     Dosage: UNK
  4. CHANTIX [Suspect]
     Indication: SMOKING CESSATION THERAPY
     Dosage: STARTING MONTH PACK AND CONTINUING MONTH PACK
     Dates: start: 20090224, end: 20090524
  5. TIZANIDINE [Concomitant]
     Indication: BACK PAIN
     Dosage: UNK
     Dates: start: 20040101, end: 20100101

REACTIONS (9)
  - AGGRESSION [None]
  - ANXIETY [None]
  - MOOD SWINGS [None]
  - DEPRESSION [None]
  - POST-TRAUMATIC STRESS DISORDER [None]
  - NIGHTMARE [None]
  - IRRITABILITY [None]
  - SUICIDAL IDEATION [None]
  - INSOMNIA [None]
